FAERS Safety Report 5297387-7 (Version None)
Quarter: 2007Q2

REPORT INFORMATION
  Report Type: 
  Country: None (occurrence: None)
  Receive Date: 20070409
  Receipt Date: 20070403
  Transmission Date: 20071010
  Serious: Yes (Death, Other)
  Sender: FDA-Public Use
  Company Number: 2007SP003451

PATIENT

DRUGS (1)
  1. TEMODAL [Suspect]
     Indication: BRAIN NEOPLASM
     Dosage: PO
     Route: 048

REACTIONS (1)
  - PANCYTOPENIA [None]
